FAERS Safety Report 4479108-0 (Version None)
Quarter: 2004Q3

REPORT INFORMATION
  Report Type: 
  Country: None (occurrence: None)
  Receive Date: 20040923
  Receipt Date: 20040802
  Transmission Date: 20050211
  Serious: Yes (Hospitalization)
  Sender: FDA-Public Use
  Company Number: 208191

PATIENT
  Age: 57 Year
  Sex: Male

DRUGS (8)
  1. AVASTIN [Suspect]
     Indication: COLON CANCER METASTATIC
     Dosage: 575 MG, Q2W, INTRAVENOUS
     Route: 042
     Dates: start: 20040518
  2. NORVASC [Concomitant]
  3. COMPAZINE [Concomitant]
  4. ATIVAN [Concomitant]
  5. COUMADIN [Concomitant]
  6. OXALIPLATIN [Concomitant]
  7. FLUOROURACIL [Concomitant]
  8. LEUCOVORIN CALCIUM [Concomitant]

REACTIONS (1)
  - GASTROINTESTINAL PERFORATION [None]
